FAERS Safety Report 4814281-3 (Version None)
Quarter: 2005Q4

REPORT INFORMATION
  Report Type: 
  Country: None (occurrence: None)
  Receive Date: 20051028
  Receipt Date: 20050728
  Transmission Date: 20060501
  Serious: No
  Sender: FDA-Public Use
  Company Number: US-GLAXOSMITHKLINE-A0568129A

PATIENT
  Sex: Female

DRUGS (4)
  1. ADVAIR DISKUS 100/50 [Suspect]
     Indication: DRUG USE FOR UNKNOWN INDICATION
     Route: 055
     Dates: start: 20050722, end: 20050724
  2. COUGH SYRUP [Concomitant]
  3. ZYRTEC [Concomitant]
  4. BIRTH CONTROL PILL [Concomitant]

REACTIONS (2)
  - CHEST DISCOMFORT [None]
  - DIZZINESS [None]
